FAERS Safety Report 4406489-6 (Version None)
Quarter: 2004Q3

REPORT INFORMATION
  Report Type: 
  Country: None (occurrence: None)
  Receive Date: 20040715
  Receipt Date: 20040706
  Transmission Date: 20050211
  Serious: Yes (Death)
  Sender: FDA-Public Use
  Company Number: 04H-114-0266321-00

PATIENT

DRUGS (3)
  1. HEPARIN SODIUM [Suspect]
     Indication: PHLEBOTHROMBOSIS
     Dosage: 24070 + 3576 IU/24 HOUR,
  2. HEPARIN SODIUM [Suspect]
     Indication: PHLEBOTHROMBOSIS
     Dosage: 5000 UNIT, ONE TIME BOLUS DOSE,
  3. WARFARIN SODIUM [Concomitant]

REACTIONS (1)
  - PULMONARY EMBOLISM [None]
